FAERS Safety Report 10168405 (Version 1)
Quarter: 2014Q2

REPORT INFORMATION
  Report Type: Spontaneous
  Country: CA (occurrence: CA)
  Receive Date: 20140513
  Receipt Date: 20140513
  Transmission Date: 20141212
  Serious: Yes (Other)
  Sender: FDA-Public Use
  Company Number: CA-AMGEN-CANSP2014034283

PATIENT
  Age: 58 Year
  Sex: Male

DRUGS (4)
  1. ENBREL [Suspect]
     Indication: RHEUMATOID ARTHRITIS
     Dosage: 50 MG, QWK
     Route: 065
     Dates: start: 20131025
  2. METHOTREXATE [Concomitant]
     Dosage: UNK UNK, QWK, 10 TABS
  3. FOLIC ACID [Concomitant]
     Dosage: 5 MG, QWK, 1 TABLET
  4. PREDNISONE [Concomitant]
     Dosage: 5.7 MG, UNK, EVERY OTHER DAY

REACTIONS (1)
  - Upper limb fracture [Recovering/Resolving]
